FAERS Safety Report 7618050-0 (Version None)
Quarter: 2011Q3

REPORT INFORMATION
  Report Type: 
  Country: None (occurrence: None)
  Receive Date: 20110718
  Receipt Date: 20110714
  Transmission Date: 20111222
  Serious: Yes (Death)
  Sender: FDA-Public Use
  Company Number: US-B.I. PHARMACEUTICALS,INC./RIDGEFIELD-2011-BP-13055BP

PATIENT
  Age: 75 Year
  Sex: Female

DRUGS (5)
  1. XANAX [Concomitant]
     Dosage: 0.25 MG
  2. PRADAXA [Suspect]
     Indication: ATRIAL FIBRILLATION
     Dosage: 300 MG
     Dates: start: 20110201
  3. SIMVASTATIN [Concomitant]
     Indication: BLOOD CHOLESTEROL INCREASED
  4. ZOLOFT [Concomitant]
     Dosage: 50 MG
  5. OMEPRAZOLE [Concomitant]
     Dosage: 20 MG

REACTIONS (1)
  - HAEMORRHAGE INTRACRANIAL [None]
